FAERS Safety Report 8102132-3 (Version None)
Quarter: 2012Q1

REPORT INFORMATION
  Report Type: 
  Country: None (occurrence: None)
  Receive Date: 20120131
  Receipt Date: 20120125
  Transmission Date: 20120608
  Serious: Yes (Other)
  Sender: FDA-Public Use
  Company Number: PHHY2012GB006636

PATIENT
  Age: 37 Year
  Sex: Male
  Weight: 111 kg

DRUGS (6)
  1. ACETAMINOPHEN [Concomitant]
     Dosage: UNK UKN, UNK
     Dates: start: 20120117
  2. TRAMADOL HCL [Suspect]
     Dosage: UNK UKN, UNK
     Dates: start: 20111128
  3. AMITRIPTYLINE HCL [Concomitant]
     Dosage: UNK UKN, UNK
     Dates: start: 20111128
  4. ACETAMINOPHEN [Concomitant]
     Dosage: UNK UKN, UNK
     Dates: start: 20111128, end: 20111210
  5. DICLOFENAC SODIUM [Concomitant]
     Dosage: UNK UKN, UNK
     Dates: start: 20111201, end: 20111229
  6. OMEPRAZOLE [Concomitant]
     Dosage: UNK UKN, UNK
     Dates: start: 20111201, end: 20111229

REACTIONS (1)
  - INSOMNIA [None]
